FAERS Safety Report 8878734 (Version 1)
Quarter: 2012Q4

REPORT INFORMATION
  Report Type: 
  Country: US (occurrence: US)
  Receive Date: 20121025
  Receipt Date: 20121025
  Transmission Date: 20130627
  Serious: No
  Sender: FDA-Public Use
  Company Number: US-AMGEN-USASP2012016335

PATIENT
  Age: 37 Year
  Sex: Male

DRUGS (2)
  1. ENBREL [Suspect]
     Indication: PSORIASIS
     Dosage: 50 mg, 2 times/wk
     Route: 058
     Dates: start: 20120302
  2. ENBREL [Suspect]
     Dosage: 50 mg, qwk
     Route: 058

REACTIONS (6)
  - Dizziness [Recovered/Resolved]
  - Headache [Recovered/Resolved]
  - Dyspnoea [Not Recovered/Not Resolved]
  - Drug effect incomplete [Not Recovered/Not Resolved]
  - Scar [Not Recovered/Not Resolved]
  - Skin discolouration [Not Recovered/Not Resolved]
